FAERS Safety Report 4333049-8 (Version None)
Quarter: 2004Q1

REPORT INFORMATION
  Report Type: 
  Country: None (occurrence: None)
  Receive Date: 20040330
  Receipt Date: 20040319
  Transmission Date: 20041129
  Serious: Yes (Death)
  Sender: FDA-Public Use
  Company Number: 143-20785-04030552

PATIENT
  Age: 43 Year
  Sex: Male

DRUGS (1)
  1. THALIDOMIDE - PHARMION (THALIDOMIDE) [Suspect]
     Indication: MULTIPLE MYELOMA
     Dates: end: 20040204

REACTIONS (2)
  - DISEASE PROGRESSION [None]
  - DRUG INEFFECTIVE [None]
